FAERS Safety Report 13202921 (Version 1)
Quarter: 2017Q1

REPORT INFORMATION
  Report Type: Spontaneous
  Country: US (occurrence: US)
  Receive Date: 20170208
  Receipt Date: 20170208
  Transmission Date: 20170428
  Serious: Yes (Hospitalization)
  Sender: FDA-Public Use
  Company Number: US-ASTRAZENECA-2017SE12113

PATIENT
  Sex: Male

DRUGS (1)
  1. SYMBICORT [Suspect]
     Active Substance: BUDESONIDE\FORMOTEROL FUMARATE DIHYDRATE
     Dosage: 2 PUFFS
     Route: 055

REACTIONS (7)
  - Intentional device misuse [Not Recovered/Not Resolved]
  - Off label use of device [Not Recovered/Not Resolved]
  - Product use issue [Unknown]
  - Hypotension [Unknown]
  - Oropharyngeal pain [Unknown]
  - Device failure [Unknown]
  - Bronchial disorder [Unknown]

NARRATIVE: CASE EVENT DATE: 201701
